FAERS Safety Report 13538614 (Version 1)
Quarter: 2017Q2

REPORT INFORMATION
  Report Type: Spontaneous
  Country: DE (occurrence: DE)
  Receive Date: 20170512
  Receipt Date: 20170512
  Transmission Date: 20170830
  Serious: Yes (Life-Threatening)
  Sender: FDA-Public Use
  Company Number: DE-DRREDDYS-GER/GER/17/0090635

PATIENT
  Age: 68 Year
  Sex: Male
  Weight: 130 kg

DRUGS (1)
  1. RAMIPRIL. [Suspect]
     Active Substance: RAMIPRIL
     Indication: HYPERTENSION

REACTIONS (3)
  - Swollen tongue [Recovered/Resolved]
  - Angioedema [Recovered/Resolved]
  - Epiglottic oedema [Recovered/Resolved]

NARRATIVE: CASE EVENT DATE: 20170414
